FAERS Safety Report 22907514 (Version 3)
Quarter: 2023Q4

REPORT INFORMATION
  Report Type: Spontaneous
  Country: US (occurrence: US)
  Receive Date: 20230905
  Receipt Date: 20231130
  Transmission Date: 20240109
  Serious: Yes (Hospitalization, Other)
  Sender: FDA-Public Use
  Company Number: US-PFIZER INC-PV202300100792

PATIENT
  Age: 8 Year
  Sex: Female
  Weight: 19.4 kg

DRUGS (2)
  1. OXBRYTA [Suspect]
     Active Substance: VOXELOTOR
     Dosage: 600 MG, 1X/DAY (300 MG, 2 TABLETS FOR ORAL SUSPENSION, ONCE DAILY)
     Route: 048
     Dates: start: 20221202
  2. OXBRYTA [Suspect]
     Active Substance: VOXELOTOR
     Dosage: 900 MG, 1X/DAY, (300 MG. TABLETS FOR ORAL SUSPENSION, 3 TABLETS, ONCE DAILY, ORALLY.)
     Route: 048
     Dates: start: 20221202

REACTIONS (4)
  - Haemoglobin decreased [Unknown]
  - Fatigue [Unknown]
  - Decreased appetite [Unknown]
  - Off label use [Unknown]
